FAERS Safety Report 10825589 (Version 1)
Quarter: 2015Q1

REPORT INFORMATION
  Report Type: Report from Study
  Country: US (occurrence: US)
  Receive Date: 20150219
  Receipt Date: 20150219
  Transmission Date: 20150721
  Serious: No
  Sender: FDA-Public Use
  Company Number: US-ABBVIE-14K-163-1315676-00

PATIENT
  Age: 22 Year
  Sex: Female

DRUGS (3)
  1. HUMIRA [Suspect]
     Active Substance: ADALIMUMAB
     Route: 058
     Dates: start: 201411
  2. ENBREL [Concomitant]
     Active Substance: ETANERCEPT
     Indication: PRODUCT USED FOR UNKNOWN INDICATION
  3. HUMIRA [Suspect]
     Active Substance: ADALIMUMAB
     Indication: RHEUMATOID ARTHRITIS
     Route: 058
     Dates: start: 20140523, end: 201411

REACTIONS (10)
  - Oropharyngeal pain [Not Recovered/Not Resolved]
  - Speech disorder [Recovered/Resolved]
  - Rheumatoid arthritis [Recovered/Resolved]
  - Headache [Not Recovered/Not Resolved]
  - Abasia [Recovered/Resolved]
  - Cardiac disorder [Unknown]
  - Vision blurred [Recovered/Resolved]
  - Pain in jaw [Recovered/Resolved]
  - Abdominal discomfort [Not Recovered/Not Resolved]
  - Pain in extremity [Recovered/Resolved]

NARRATIVE: CASE EVENT DATE: 201405
